FAERS Safety Report 9422238 (Version 1)
Quarter: 2013Q3

REPORT INFORMATION
  Report Type: Spontaneous
  Country: US (occurrence: None)
  Receive Date: 20130725
  Receipt Date: 20130725
  Transmission Date: 20140515
  Serious: Yes (Hospitalization)
  Sender: FDA-Public Use
  Company Number: None

PATIENT
  Age: 75 Year
  Sex: Female

DRUGS (1)
  1. PHENERGAN [Suspect]
     Dosage: 12.5?
     Route: 048

REACTIONS (3)
  - Sedation [None]
  - Hypertensive crisis [None]
  - Drug dose omission [None]
